FAERS Safety Report 16836919 (Version 1)
Quarter: 2019Q3

REPORT INFORMATION
  Report Type: Spontaneous
  Country: CN (occurrence: CN)
  Receive Date: 20190923
  Receipt Date: 20190923
  Transmission Date: 20191005
  Serious: Yes (Other)
  Sender: FDA-Public Use
  Company Number: CN-BAXTER-2019BAX018322

PATIENT
  Age: 65 Year
  Sex: Female
  Weight: 47 kg

DRUGS (12)
  1. LIPUSU [Suspect]
     Active Substance: PACLITAXEL
     Indication: BREAST CANCER FEMALE
     Dosage: FIRST AND SECOND ADJUVANT CHEMOTHERAPIES. LIPUSU + GLUCOSE
     Route: 041
  2. 0.9% SODIUM CHLORIDE INJECTION [Suspect]
     Active Substance: SODIUM CHLORIDE
     Indication: MEDICATION DILUTION
     Dosage: FIRST AND SECOND ADJUVANT CHEMOTHERAPIES. ENDOXAN + SODIUM CHLORIDE
     Route: 041
  3. ENDOXAN [Suspect]
     Active Substance: CYCLOPHOSPHAMIDE
     Dosage: DOSE RE-INTRODUCED. ENDOXAN + SODIUM CHLORIDE
     Route: 041
  4. 0.9% SODIUM CHLORIDE INJECTION [Suspect]
     Active Substance: SODIUM CHLORIDE
     Dosage: DOSE RE-INTRODUCED. ENDOXAN + SODIUM CHLORIDE
     Route: 041
  5. LIPUSU [Suspect]
     Active Substance: PACLITAXEL
     Dosage: DOSE RE-INTRODUCED. LIPUSU + GLUCOSE
     Route: 041
  6. LIPUSU [Suspect]
     Active Substance: PACLITAXEL
     Dosage: THIRD ADJUVANT CHEMOTHERAPY. LIPUSU 230 MG + GLUCOSE 500 ML
     Route: 041
     Dates: start: 20190828, end: 20190828
  7. ENDOXAN [Suspect]
     Active Substance: CYCLOPHOSPHAMIDE
     Indication: BREAST CANCER FEMALE
     Dosage: FIRST AND SECOND ADJUVANT CHEMOTHERAPIES. ENDOXAN + SODIUM CHLORIDE
     Route: 041
  8. ENDOXAN [Suspect]
     Active Substance: CYCLOPHOSPHAMIDE
     Dosage: THIRD ADJUVANT CHEMOTHERAPY. ENDOXAN 0.7 GRAMS + SODIUM CHLORIDE 100 ML
     Route: 041
     Dates: start: 20190829, end: 20190829
  9. 0.9% SODIUM CHLORIDE INJECTION [Suspect]
     Active Substance: SODIUM CHLORIDE
     Dosage: THIRD ADJUVANT CHEMOTHERAPY. ENDOXAN 0.7 GRAMS + SODIUM CHLORIDE 100 ML
     Route: 041
     Dates: start: 20190829, end: 20190829
  10. GLUCOSE [Suspect]
     Active Substance: DEXTROSE
     Indication: MEDICATION DILUTION
     Dosage: FIRST AND SECOND ADJUVANT CHEMOTHERAPIES. LIPUSU + GLUCOSE
     Route: 041
  11. GLUCOSE [Suspect]
     Active Substance: DEXTROSE
     Dosage: THIRD ADJUVANT CHEMOTHERAPY. LIPUSU 230 MG + GLUCOSE 500 ML
     Route: 041
     Dates: start: 20190829, end: 20190829
  12. GLUCOSE [Suspect]
     Active Substance: DEXTROSE
     Dosage: DOSE RE-INTRODUCED. LIPUSU + GLUCOSE
     Route: 041

REACTIONS (6)
  - Nausea [Recovered/Resolved]
  - Abdominal discomfort [Recovering/Resolving]
  - Bone marrow failure [Recovering/Resolving]
  - Hypophagia [Unknown]
  - Nausea [Recovered/Resolved]
  - Vomiting [Unknown]

NARRATIVE: CASE EVENT DATE: 20190830
